FAERS Safety Report 17711862 (Version 1)
Quarter: 2020Q2

REPORT INFORMATION
  Report Type: Spontaneous
  Country: US (occurrence: US)
  Receive Date: 20200427
  Receipt Date: 20200427
  Transmission Date: 20200714
  Serious: No
  Sender: FDA-Public Use
  Company Number: US-NEXGEN PHARMA, INC.-2083168

PATIENT
  Age: 16 Year
  Sex: Female

DRUGS (1)
  1. CHENODAL [Suspect]
     Active Substance: CHENODIOL
     Indication: BLOOD CHOLESTEROL ABNORMAL
     Route: 048
     Dates: start: 20190921

REACTIONS (1)
  - Social avoidant behaviour [None]
